FAERS Safety Report 14830884 (Version 2)
Quarter: 2019Q3

REPORT INFORMATION
  Report Type: Spontaneous
  Country: US (occurrence: US)
  Receive Date: 20180430
  Receipt Date: 20190925
  Transmission Date: 20191004
  Serious: No
  Sender: FDA-Public Use
  Company Number: US-SA-2018SA118635

PATIENT
  Age: 64 Year
  Sex: Female

DRUGS (2)
  1. PRALUENT [Suspect]
     Active Substance: ALIROCUMAB
     Dosage: UNK UNK,UNK
     Route: 058
  2. PRALUENT [Suspect]
     Active Substance: ALIROCUMAB
     Dosage: 75 MG, OTHER
     Route: 058
     Dates: start: 201306

REACTIONS (2)
  - Injection site bruising [Unknown]
  - Injection site erythema [Unknown]

NARRATIVE: CASE EVENT DATE: 2018
